FAERS Safety Report 6904369-5 (Version None)
Quarter: 2010Q3

REPORT INFORMATION
  Report Type: 
  Country: None (occurrence: None)
  Receive Date: 20100804
  Receipt Date: 20090506
  Transmission Date: 20110219
  Serious: No
  Sender: FDA-Public Use
  Company Number: US-PFIZER INC-2009209642

PATIENT
  Age: 65 Year
  Sex: Female
  Weight: 49.887 kg

DRUGS (4)
  1. LYRICA [Suspect]
     Indication: CARPAL TUNNEL SYNDROME
     Dosage: FREQUENCY: 3X/DAY, EVERY DAY;
     Dates: start: 20090505
  2. OXYCODONE [Concomitant]
     Dosage: UNK
  3. PLAVIX [Concomitant]
     Dosage: UNK
  4. IBANDRONATE SODIUM [Concomitant]
     Dosage: UNK

REACTIONS (5)
  - CHEST PAIN [None]
  - DISORIENTATION [None]
  - DIZZINESS [None]
  - DYSPNOEA [None]
  - NAUSEA [None]
